FAERS Safety Report 6979948-X (Version None)
Quarter: 2010Q3

REPORT INFORMATION
  Report Type: 
  Country: None (occurrence: None)
  Receive Date: 20100909
  Receipt Date: 20100823
  Transmission Date: 20110219
  Serious: Yes (Hospitalization, Other)
  Sender: FDA-Public Use
  Company Number: 20100424

PATIENT
  Age: 65 Year
  Sex: Male

DRUGS (1)
  1. METHYLENE BLUE INJECTION, USP (0310-10)(METHYLENE BLUE) 10 MG/ML [Suspect]
     Indication: IMAGING PROCEDURE
     Dosage: 650 MG IN 500 ML, (7.5 MG/KG) INTRAVENOUS DRIP
     Route: 041

REACTIONS (21)
  - ACIDOSIS [None]
  - AGITATION POSTOPERATIVE [None]
  - BLOOD CALCIUM DECREASED [None]
  - BLOOD POTASSIUM INCREASED [None]
  - BUNDLE BRANCH BLOCK LEFT [None]
  - CHILLS [None]
  - CONFUSION POSTOPERATIVE [None]
  - DELAYED RECOVERY FROM ANAESTHESIA [None]
  - DEPRESSED LEVEL OF CONSCIOUSNESS [None]
  - DRUG TOXICITY [None]
  - ELECTROCARDIOGRAM ST SEGMENT DEPRESSION [None]
  - EXTRASYSTOLES [None]
  - HAEMODIALYSIS [None]
  - HYPERHIDROSIS [None]
  - HYPERPYREXIA [None]
  - HYPERTHERMIA MALIGNANT [None]
  - LOW CARDIAC OUTPUT SYNDROME [None]
  - OXYGEN SATURATION DECREASED [None]
  - SINUS TACHYCARDIA [None]
  - TREMOR [None]
  - VOMITING [None]
